FAERS Safety Report 7069767-0 (Version None)
Quarter: 2010Q4

REPORT INFORMATION
  Report Type: 
  Country: None (occurrence: None)
  Receive Date: 20101028
  Receipt Date: 20100524
  Transmission Date: 20110411
  Serious: No
  Sender: FDA-Public Use
  Company Number: US-WYE-H15352010

PATIENT
  Sex: Female
  Weight: 51.3 kg

DRUGS (10)
  1. PROTONIX [Suspect]
     Indication: ABDOMINAL DISCOMFORT
     Route: 048
     Dates: start: 20100412
  2. MELOXICAM [Suspect]
     Indication: BACK PAIN
     Dosage: 15 MG FREQUENCY UNKNOWN
     Route: 048
  3. DIAZEPAM [Suspect]
     Dosage: 10 MG UP TO 5 X'S DAILY
     Route: 048
  4. FLONASE [Concomitant]
  5. ACETAMINOPHEN [Concomitant]
  6. LORATADINE [Concomitant]
  7. LEVOTHYROXINE [Concomitant]
  8. ALLEGRA [Concomitant]
  9. GABAPENTIN [Suspect]
     Indication: NERVE ROOT LESION
     Route: 048
     Dates: start: 19940505
  10. HYDROCODONE [Concomitant]

REACTIONS (2)
  - DRUG SCREEN FALSE POSITIVE [None]
  - THERAPEUTIC RESPONSE DELAYED [None]
